FAERS Safety Report 9316674 (Version 2)
Quarter: 2013Q2

REPORT INFORMATION
  Report Type: Spontaneous
  Country: RU (occurrence: RU)
  Receive Date: 20130530
  Receipt Date: 20130607
  Transmission Date: 20140414
  Serious: Yes (Life-Threatening, Other)
  Sender: FDA-Public Use
  Company Number: RU-ASTELLAS-2013EU004590

PATIENT
  Age: 18 Month
  Sex: Female

DRUGS (7)
  1. PROGRAF [Suspect]
     Dosage: 1 MG, TID
     Route: 065
  2. MYCOPHENOLATE MOFETIL [Concomitant]
     Indication: RENAL TRANSPLANT
     Dosage: 90 MG, UNKNOWN/D
     Route: 065
  3. MYCOPHENOLATE MOFETIL [Concomitant]
     Dosage: 90 MG/DAY, BID
     Route: 065
  4. METHYLPREDNISOLONE [Concomitant]
     Dosage: 125 MG, UNKNOWN/D
     Route: 065
  5. VANCOMYCIN [Concomitant]
     Indication: ANTIBIOTIC THERAPY
     Dosage: 10 MG/KG, UNKNOWN/D
     Route: 065
  6. CEFOTAXIME [Concomitant]
     Indication: ANTIBIOTIC THERAPY
     Dosage: 1 G, UNKNOWN/D
     Route: 065
  7. CEFOTAXIME [Concomitant]
     Dosage: 1 G, BID
     Route: 065

REACTIONS (3)
  - Pseudomonas infection [Recovered/Resolved]
  - Multiple-drug resistance [Recovered/Resolved]
  - Vascular graft complication [Recovered/Resolved]
